FAERS Safety Report 4559690-5 (Version None)
Quarter: 2005Q1

REPORT INFORMATION
  Report Type: 
  Country: None (occurrence: None)
  Receive Date: 20050114
  Receipt Date: 20040203
  Transmission Date: 20050727
  Serious: Yes (Other)
  Sender: FDA-Public Use
  Company Number: FEI2004-0037

PATIENT
  Age: 45 Year
  Sex: Female

DRUGS (3)
  1. INTRAUTERINE COPPER CONTRACEPTIVE [Suspect]
     Indication: CONTRACEPTION
     Dosage: INTRA-UTERINE
     Route: 015
     Dates: start: 19920218
  2. ZOLOFT [Concomitant]
  3. VALTREX [Concomitant]

REACTIONS (5)
  - ABDOMINAL PAIN [None]
  - IUCD COMPLICATION [None]
  - IUD MIGRATION [None]
  - OFF LABEL USE [None]
  - VAGINAL HAEMORRHAGE [None]
